FAERS Safety Report 11001873 (Version 2)
Quarter: 2015Q2

REPORT INFORMATION
  Report Type: Spontaneous
  Country: RU (occurrence: RU)
  Receive Date: 20150408
  Receipt Date: 20150408
  Transmission Date: 20150821
  Serious: Yes (Other)
  Sender: FDA-Public Use
  Company Number: CHPA2015RU004772

PATIENT
  Sex: Female

DRUGS (1)
  1. DICLOFENAC [Suspect]
     Active Substance: DICLOFENAC
     Indication: ANKYLOSING SPONDYLITIS
     Dosage: 100 TO 150 MG/DAY
     Route: 065

REACTIONS (3)
  - Crohn^s disease [Unknown]
  - Large intestinal haemorrhage [Unknown]
  - Large intestinal ulcer [Unknown]
